FAERS Safety Report 11410946 (Version 1)
Quarter: 2015Q3

REPORT INFORMATION
  Report Type: Spontaneous
  Country: US (occurrence: US)
  Receive Date: 20150821
  Receipt Date: 20150821
  Transmission Date: 20151125
  Serious: No
  Sender: FDA-Public Use
  Company Number: US-ELI_LILLY_AND_COMPANY-US201001006152

PATIENT
  Sex: Female

DRUGS (3)
  1. HUMULIN N [Suspect]
     Active Substance: INSULIN HUMAN
     Indication: DIABETES MELLITUS
     Dosage: 25 U, 3/D
     Dates: start: 20091111
  2. HUMULIN N [Suspect]
     Active Substance: INSULIN HUMAN
     Dosage: 25 U, 3/D
     Dates: start: 20091111
  3. NOVOLIN R [Concomitant]
     Active Substance: INSULIN HUMAN
     Dosage: UNK, AS NEEDED

REACTIONS (8)
  - Wrong technique in product usage process [Unknown]
  - Pollakiuria [Not Recovered/Not Resolved]
  - Dizziness [Not Recovered/Not Resolved]
  - Vision blurred [Not Recovered/Not Resolved]
  - Anxiety [Unknown]
  - Drug dose omission [Unknown]
  - Blood glucose increased [Recovered/Resolved]
  - Fall [Not Recovered/Not Resolved]

NARRATIVE: CASE EVENT DATE: 200911
